FAERS Safety Report 6531132-X (Version None)
Quarter: 2010Q1

REPORT INFORMATION
  Report Type: 
  Country: None (occurrence: None)
  Receive Date: 20100108
  Receipt Date: 20091203
  Transmission Date: 20100710
  Serious: No
  Sender: FDA-Public Use
  Company Number: US-BAYER-200942059NA

PATIENT
  Age: 43 Year
  Sex: Female
  Weight: 71 kg

DRUGS (1)
  1. CLIMARA PRO [Suspect]
     Indication: MENOPAUSAL SYMPTOMS
     Dosage: 0.045/ 0.015 MG/DAY AT ABDOMEN
     Route: 062

REACTIONS (2)
  - NO ADVERSE EVENT [None]
  - WITHDRAWAL BLEED [None]
